FAERS Safety Report 19821140 (Version 1)
Quarter: 2021Q3

REPORT INFORMATION
  Report Type: Spontaneous
  Country: US (occurrence: US)
  Receive Date: 20210909
  Receipt Date: 20210909
  Transmission Date: 20211014
  Serious: Yes (Death)
  Sender: FDA-Public Use
  Company Number: None

PATIENT
  Sex: Female

DRUGS (1)
  1. XEOMIN [Suspect]
     Active Substance: INCOBOTULINUMTOXINA
     Indication: TORTICOLLIS
     Dosage: OTHER STRENGTH:500U/VL;OTHER FREQUENCY:EVERY 3 MONTHS;?
     Route: 030
     Dates: start: 20210610

REACTIONS (3)
  - Fall [None]
  - Hip fracture [None]
  - Cerebral haemorrhage [None]
